FAERS Safety Report 9384289 (Version 1)
Quarter: 2013Q3

REPORT INFORMATION
  Report Type: Spontaneous
  Country: FR (occurrence: FR)
  Receive Date: 20130705
  Receipt Date: 20130705
  Transmission Date: 20140515
  Serious: Yes (Other)
  Sender: FDA-Public Use
  Company Number: PHHY2013FR067450

PATIENT
  Age: 73 Year
  Sex: Female

DRUGS (12)
  1. ZOMETA [Suspect]
     Dosage: 4 MG, ONCE/SINGLE
     Route: 042
     Dates: start: 20130215, end: 20130215
  2. REPAGLINIDE ARROW [Suspect]
     Indication: HYPERGLYCAEMIA
     Dosage: 1 MG, QD
     Route: 048
     Dates: start: 20130306, end: 20130308
  3. REVLIMID [Suspect]
     Dosage: 25 MG, QD
     Route: 048
     Dates: start: 20130218, end: 20130310
  4. CORDARONE [Concomitant]
     Indication: ARRHYTHMIA
     Dosage: 600 MG, QD
     Route: 048
     Dates: start: 20130205, end: 20130207
  5. CORDARONE [Concomitant]
     Dosage: 200 MG, QD
     Route: 048
     Dates: start: 20130207
  6. TAHOR [Concomitant]
     Dosage: 10 MG, QD
  7. LOVENOX [Concomitant]
     Dosage: 0.4 ML, QD
     Dates: start: 20130204, end: 20130205
  8. LOVENOX [Concomitant]
     Dosage: 0.7 ML, BID
     Dates: start: 20130205, end: 20130208
  9. LOVENOX [Concomitant]
     Dosage: 0.4 ML, QD
  10. LEVOTHYROX [Concomitant]
     Dosage: 100 UG, QD
  11. DEXAMETHASONE [Concomitant]
     Dosage: 20 MG, QW
     Dates: start: 20130218
  12. MOVICOL [Concomitant]
     Dosage: 2 DF, QD
     Dates: start: 20130306, end: 20130311

REACTIONS (4)
  - Vascular purpura [Recovered/Resolved]
  - Rash erythematous [None]
  - Anaemia [None]
  - Muscle haemorrhage [None]
